FAERS Safety Report 15069343 (Version 2)
Quarter: 2018Q4

REPORT INFORMATION
  Report Type: Spontaneous
  Country: US (occurrence: US)
  Receive Date: 20180626
  Receipt Date: 20181016
  Transmission Date: 20190204
  Serious: No
  Sender: FDA-Public Use
  Company Number: US-AMGEN-USASP2017103519

PATIENT
  Age: 62 Year
  Sex: Male
  Weight: 116.55 kg

DRUGS (4)
  1. DEXAMETHASONE PHOSPHATE [Concomitant]
     Active Substance: DEXAMETHASONE PHOSPHATE
     Dosage: 10 MG, UNK
  2. TAXOTERE [Concomitant]
     Active Substance: DOCETAXEL
     Dosage: 193 MG, UNK (WITH 250 CC NORMAL SALINE FOR 75 MINUTES)
     Route: 042
     Dates: start: 201706
  3. NEULASTA [Suspect]
     Active Substance: PEGFILGRASTIM
     Indication: NEUTROPENIA
     Dosage: 6 MG, AFTER CHEMO
     Route: 058
     Dates: start: 20170614
  4. ALOXI [Concomitant]
     Active Substance: PALONOSETRON HYDROCHLORIDE
     Dosage: 250 MUG, UNK
     Route: 042

REACTIONS (8)
  - Depression [Not Recovered/Not Resolved]
  - Retching [Recovering/Resolving]
  - Vomiting [Recovered/Resolved]
  - Cognitive disorder [Not Recovered/Not Resolved]
  - Anxiety [Not Recovered/Not Resolved]
  - Wrong technique in product usage process [Unknown]
  - Nausea [Not Recovered/Not Resolved]
  - Pain [Unknown]

NARRATIVE: CASE EVENT DATE: 2017
